FAERS Safety Report 24307396 (Version 1)
Quarter: 2024Q3

REPORT INFORMATION
  Report Type: Spontaneous
  Country: CZ (occurrence: CZ)
  Receive Date: 20240911
  Receipt Date: 20240911
  Transmission Date: 20241016
  Serious: Yes (Life-Threatening, Hospitalization, Other)
  Sender: OTSUKA
  Company Number: None

PATIENT
  Age: 54 Year
  Sex: Female
  Weight: 100 kg

DRUGS (12)
  1. ABILIFY MAINTENA [Suspect]
     Active Substance: ARIPIPRAZOLE
     Indication: Schizophrenia
     Dosage: 400 MG (ONE TIME USE)
     Route: 065
     Dates: start: 20240821, end: 20240821
  2. ABILIFY [Suspect]
     Active Substance: ARIPIPRAZOLE
     Indication: Schizophrenia
     Dosage: 15 MG (LONG-TERM TREATMENT)
     Route: 065
  3. PERINDOPRIL ARGININE [Concomitant]
     Active Substance: PERINDOPRIL ARGININE
     Indication: Hypertension
     Dosage: 10 MG (LONG-TERM TREATMENT)
     Route: 048
  4. VIMPAT [Concomitant]
     Active Substance: LACOSAMIDE
     Indication: Epilepsy
     Dosage: 50 MG (LONG-TERM TREATMENT)
     Route: 065
  5. TORVACARD NEO [Concomitant]
     Indication: Hypercholesterolaemia
     Dosage: 20 MG (LONG-TERM TREATMENT)
     Route: 065
  6. TORVACARD NEO [Concomitant]
     Dosage: 40 MG (LONG-TERM TREATMENT)
     Route: 065
  7. AMILIA [Concomitant]
     Indication: Schizophrenia
     Dosage: 200 MG (LONG-TERM TREATMENT)
     Route: 065
  8. AMILIA [Concomitant]
     Dosage: 50 MG (LONG-TERM TREATMENT)
     Route: 065
  9. LEVETIRACETAM [Concomitant]
     Active Substance: LEVETIRACETAM
     Indication: Epilepsy
     Dosage: 1000 MG (LONG-TERM TREATMENT)
     Route: 065
  10. AMLODIPINE BESYLATE [Concomitant]
     Active Substance: AMLODIPINE BESYLATE
     Indication: Hypertension
     Dosage: 10 MG (LONG-TERM TREATMENT)
     Route: 048
  11. CARSAXA [Concomitant]
     Indication: Antiplatelet therapy
     Dosage: 100 MG (LONG-TERM TREATMENT)
     Route: 065
  12. LEVETIRACETAM [Concomitant]
     Active Substance: LEVETIRACETAM
     Indication: Epilepsy
     Dosage: 500 MG (LONG-TERM TREATMENT)
     Route: 065

REACTIONS (1)
  - Deep vein thrombosis [Recovering/Resolving]

NARRATIVE: CASE EVENT DATE: 20240822
